FAERS Safety Report 15112575 (Version 5)
Quarter: 2019Q1

REPORT INFORMATION
  Report Type: Report from Study
  Country: US (occurrence: US)
  Receive Date: 20180705
  Receipt Date: 20190215
  Transmission Date: 20190417
  Serious: Yes (Hospitalization)
  Sender: FDA-Public Use
  Company Number: US-ACTELION-A-NJ2018-174633

PATIENT
  Age: 82 Year
  Sex: Female
  Weight: 72.56 kg

DRUGS (4)
  1. ADEMPAS [Concomitant]
     Active Substance: RIOCIGUAT
  2. UPTRAVI [Suspect]
     Active Substance: SELEXIPAG
     Dosage: 200 MCG, BID
     Route: 048
     Dates: start: 201806
  3. UPTRAVI [Suspect]
     Active Substance: SELEXIPAG
     Indication: PULMONARY ARTERIAL HYPERTENSION
     Dosage: UNK
     Route: 048
  4. UPTRAVI [Suspect]
     Active Substance: SELEXIPAG
     Dosage: 400 MCG, BID
     Route: 048

REACTIONS (9)
  - Oedema [Unknown]
  - Kidney infection [Unknown]
  - Urinary tract infection [Unknown]
  - Dyspnoea exertional [Not Recovered/Not Resolved]
  - Basedow^s disease [Unknown]
  - Headache [Not Recovered/Not Resolved]
  - Dyspnoea [Unknown]
  - Hospitalisation [Unknown]
  - Fluid retention [Unknown]
